FAERS Safety Report 9835042 (Version 3)
Quarter: 2014Q2

REPORT INFORMATION
  Report Type: Spontaneous
  Country: US (occurrence: US)
  Receive Date: 20140122
  Receipt Date: 20140423
  Transmission Date: 20141212
  Serious: Yes (Hospitalization)
  Sender: FDA-Public Use
  Company Number: US-TMC-CABO-14003937

PATIENT
  Age: 39 Year
  Sex: Male

DRUGS (9)
  1. COMETRIQ [Suspect]
     Indication: THYROID CANCER
     Dosage: 140 MG, QD
     Route: 048
     Dates: start: 20131228, end: 20140102
  2. COMETRIQ [Suspect]
     Dosage: 140 MG, QD
     Route: 048
     Dates: start: 20140107, end: 20140120
  3. COMETRIQ [Suspect]
     Dosage: 140 MG, QD
     Route: 048
     Dates: start: 20140123, end: 2014
  4. COMETRIQ [Suspect]
     Dosage: 100 MG, QD
     Route: 048
     Dates: start: 20140329
  5. METHADONE [Concomitant]
  6. ZOFRAN [Concomitant]
  7. SYNTHROID [Concomitant]
  8. NEXIUM [Concomitant]
  9. CLARITIN-D [Concomitant]

REACTIONS (10)
  - Blood calcium abnormal [Unknown]
  - Dyspnoea exertional [Recovering/Resolving]
  - Asthenia [Recovering/Resolving]
  - Fatigue [Recovering/Resolving]
  - Stomatitis [Recovering/Resolving]
  - Body temperature decreased [Unknown]
  - Candida infection [Recovered/Resolved]
  - Protein total abnormal [Unknown]
  - Restlessness [Unknown]
  - Blood pressure abnormal [Unknown]
